FAERS Safety Report 8015928-3 (Version None)
Quarter: 2011Q4

REPORT INFORMATION
  Report Type: 
  Country: None (occurrence: None)
  Receive Date: 20111230
  Receipt Date: 20111222
  Transmission Date: 20120403
  Serious: Yes (Other)
  Sender: FDA-Public Use
  Company Number: ZA-ABBOTT-11P-143-0886013-03

PATIENT
  Age: 8 Year
  Weight: 34 kg

DRUGS (4)
  1. LAMIVUDINE (EPIVIR HBV) [Concomitant]
     Indication: HIV INFECTION
     Route: 048
     Dates: start: 20100830
  2. RITONAVIR [Suspect]
     Indication: HIV INFECTION
     Route: 048
     Dates: start: 20090809
  3. BMS232632 [Concomitant]
     Indication: HIV INFECTION
     Dosage: MAME
     Route: 048
     Dates: start: 20090809
  4. D4T [Concomitant]
     Indication: HIV INFECTION
     Route: 048
     Dates: start: 20090809

REACTIONS (2)
  - BLOOD BILIRUBIN UNCONJUGATED INCREASED [None]
  - BLOOD BILIRUBIN INCREASED [None]
